FAERS Safety Report 5766879-6 (Version None)
Quarter: 2008Q2

REPORT INFORMATION
  Report Type: 
  Country: None (occurrence: None)
  Receive Date: 20080609
  Receipt Date: 20080527
  Transmission Date: 20081010
  Serious: Yes (Hospitalization)
  Sender: FDA-Public Use
  Company Number: GXKR2008IT04982

PATIENT
  Sex: Female

DRUGS (2)
  1. AMOXICILLIN TRIHYDRATE+POTASSIUM CLAVULANA (NGX)(AMOXICILLIN, CLAVULAN [Suspect]
  2. CEFTRIAXONE [Suspect]

REACTIONS (1)
  - HEPATITIS ACUTE [None]
